FAERS Safety Report 26147371 (Version 1)
Quarter: 2025Q4

REPORT INFORMATION
  Report Type: Spontaneous
  Country: US (occurrence: US)
  Receive Date: 20251211
  Receipt Date: 20251211
  Transmission Date: 20260118
  Serious: Yes (Hospitalization)
  Sender: PURDUE
  Company Number: US-NAPPMUNDI-GBR-2025-0131104

PATIENT

DRUGS (2)
  1. BUPRENORPHINE [Suspect]
     Active Substance: BUPRENORPHINE
     Indication: Drug use disorder
     Dosage: UNK, ONLY 34 088 EVENTS (19.3%) LED TO BUPRENORPHINE TREATMENT WITHIN 180 DAYS
     Route: 065
  2. NALTREXONE [Suspect]
     Active Substance: NALTREXONE
     Indication: Drug use disorder
     Dosage: UNK, 6491 (3.7%) TO NALTREXONE TREATMENT WITHIN 180 DAYS
     Route: 065

REACTIONS (3)
  - Infection [Unknown]
  - Overdose [Unknown]
  - Off label use [Unknown]
